FAERS Safety Report 12404118 (Version 1)
Quarter: 2016Q2

REPORT INFORMATION
  Report Type: Spontaneous
  Country: US (occurrence: US)
  Receive Date: 20160525
  Receipt Date: 20160525
  Transmission Date: 20160815
  Serious: Yes (Hospitalization)
  Sender: FDA-Public Use
  Company Number: US-SA-2016SA033594

PATIENT
  Age: 71 Year
  Sex: Female
  Weight: 63.95 kg

DRUGS (8)
  1. FUSILEV [Concomitant]
     Active Substance: LEVOLEUCOVORIN CALCIUM
  2. RIFAMPIN. [Concomitant]
     Active Substance: RIFAMPIN
     Route: 065
  3. OXALIPLATIN. [Concomitant]
     Active Substance: OXALIPLATIN
  4. FLUOROURACIL. [Suspect]
     Active Substance: FLUOROURACIL
     Indication: PANCREATIC CARCINOMA STAGE IV
     Route: 042
     Dates: start: 20151026, end: 20151107
  5. FLUOROURACIL. [Suspect]
     Active Substance: FLUOROURACIL
     Indication: PANCREATIC CARCINOMA STAGE IV
     Route: 065
     Dates: start: 20151026, end: 20151107
  6. CAMPTOSAR [Suspect]
     Active Substance: IRINOTECAN HYDROCHLORIDE
     Indication: PANCREATIC CARCINOMA STAGE IV
     Route: 042
     Dates: start: 20151026, end: 20151107
  7. ELOXATIN [Suspect]
     Active Substance: OXALIPLATIN
     Indication: PANCREATIC CARCINOMA STAGE IV
     Route: 042
     Dates: start: 20151026, end: 20151107
  8. FUSILEV [Suspect]
     Active Substance: LEVOLEUCOVORIN CALCIUM
     Indication: PANCREATIC CARCINOMA STAGE IV
     Route: 042
     Dates: start: 20151026, end: 20151107

REACTIONS (1)
  - Febrile neutropenia [Recovered/Resolved]

NARRATIVE: CASE EVENT DATE: 20151107
